FAERS Safety Report 5371343-2 (Version None)
Quarter: 2007Q2

REPORT INFORMATION
  Report Type: 
  Country: None (occurrence: None)
  Receive Date: 20070615
  Receipt Date: 20060717
  Transmission Date: 20071010
  Serious: Yes (Hospitalization, Other)
  Sender: FDA-Public Use
  Company Number: 200615982US

PATIENT
  Age: 17 Year
  Sex: Male

DRUGS (5)
  1. LANTUS [Suspect]
     Indication: DIABETES MELLITUS INSULIN-DEPENDENT
     Dosage: 30 U QD SC
     Route: 058
     Dates: start: 20030101
  2. APIDRA [Suspect]
     Indication: DIABETES MELLITUS INSULIN-DEPENDENT
     Dosage: 10 U PC SC
     Route: 058
     Dates: start: 20060101
  3. PARACETAMOL, DIPHENHYDRAMINE HYDROCHLORIDE (LEGATRIN PM) [Concomitant]
  4. CELEBREX [Concomitant]
  5. ANTIPSYCHOTIC NOS [Concomitant]

REACTIONS (6)
  - ASTHENIA [None]
  - HYPOGLYCAEMIA [None]
  - MALAISE [None]
  - MUSCLE SPASMS [None]
  - VOMITING [None]
  - WEIGHT DECREASED [None]
